FAERS Safety Report 6883948-8 (Version None)
Quarter: 2010Q3

REPORT INFORMATION
  Report Type: 
  Country: None (occurrence: None)
  Receive Date: 20100729
  Receipt Date: 20100726
  Transmission Date: 20110219
  Serious: Yes (Death, Hospitalization)
  Sender: FDA-Public Use
  Company Number: NL-SANOFI-AVENTIS-2010SA044077

PATIENT
  Sex: Female

DRUGS (4)
  1. OXALIPLATIN [Suspect]
     Route: 042
     Dates: start: 20100523, end: 20100523
  2. OXALIPLATIN [Suspect]
     Route: 042
  3. XELODA [Suspect]
     Route: 048
     Dates: start: 20100523
  4. XELODA [Suspect]
     Route: 048

REACTIONS (3)
  - DEHYDRATION [None]
  - DIARRHOEA [None]
  - RHINORRHOEA [None]
